FAERS Safety Report 18637370 (Version 1)
Quarter: 2020Q4

REPORT INFORMATION
  Report Type: Report from Study
  Country: US (occurrence: US)
  Receive Date: 20201218
  Receipt Date: 20201218
  Transmission Date: 20210114
  Serious: No
  Sender: FDA-Public Use
  Company Number: US-REGENERON PHARMACEUTICALS, INC.-2020-71741

PATIENT

DRUGS (2)
  1. EYLEA [Suspect]
     Active Substance: AFLIBERCEPT
     Indication: RETINAL OEDEMA
     Dosage: MONTHLY THEN EVERY 4 OR 6 WEEKS, RIGHT EYE
     Route: 031
     Dates: start: 2019, end: 2020
  2. EYLEA [Suspect]
     Active Substance: AFLIBERCEPT
     Dosage: Q6W, RIGHT EYE, LAST DOSE
     Route: 031
     Dates: start: 2020, end: 2020

REACTIONS (2)
  - Off label use [Unknown]
  - Eye infection viral [Recovered/Resolved]

NARRATIVE: CASE EVENT DATE: 202007
